FAERS Safety Report 15696534 (Version 2)
Quarter: 2019Q1

REPORT INFORMATION
  Report Type: Report from Study
  Country: IT (occurrence: IT)
  Receive Date: 20181206
  Receipt Date: 20190117
  Transmission Date: 20190417
  Serious: Yes (Life-Threatening, Other)
  Sender: FDA-Public Use
  Company Number: IT-PFIZER INC-2018500898

PATIENT
  Age: 53 Year
  Sex: Female
  Weight: 120 kg

DRUGS (26)
  1. MORPHINE [Concomitant]
     Active Substance: MORPHINE
     Dosage: 4 MG, UNK
     Route: 042
  2. INTRASTIGMINA [Concomitant]
     Indication: SURGERY
     Dosage: 2 MG, SINGLE
     Route: 042
     Dates: start: 20180817, end: 20180817
  3. INDERAL [Concomitant]
     Active Substance: PROPRANOLOL HYDROCHLORIDE
     Indication: THERAPEUTIC PROCEDURE
     Dosage: UNK
     Route: 048
  4. ONDASETRON [ONDANSETRON HYDROCHLORIDE] [Concomitant]
     Indication: PROPHYLAXIS
     Dosage: 4 MG, UNK
     Route: 042
     Dates: start: 20180817, end: 20180817
  5. PARACETAMOL [Concomitant]
     Active Substance: ACETAMINOPHEN
     Indication: SURGERY
  6. ATROPINE. [Concomitant]
     Active Substance: ATROPINE
     Indication: SURGERY
     Dosage: 1 MG, SINGLE
     Route: 042
     Dates: start: 20180817, end: 20180817
  7. FENTANYL. [Concomitant]
     Active Substance: FENTANYL
     Indication: INDUCTION OF ANAESTHESIA
     Dosage: UNK UNK, AS NEEDED
  8. ZALVISO [Suspect]
     Active Substance: SUFENTANIL CITRATE
     Indication: ABDOMINAL OPERATION
     Dosage: 15 UG, UNK
     Route: 060
     Dates: start: 20180817, end: 20180817
  9. KETOROLAC [Concomitant]
     Active Substance: KETOROLAC\KETOROLAC TROMETHAMINE
     Indication: ANALGESIC THERAPY
  10. XANAX [Concomitant]
     Active Substance: ALPRAZOLAM
     Indication: THERAPEUTIC PROCEDURE
     Dosage: UNK
     Route: 048
  11. PROPOFOL. [Concomitant]
     Active Substance: PROPOFOL
     Indication: INDUCTION OF ANAESTHESIA
     Dosage: 200 UG, SINGLE
     Route: 042
     Dates: start: 20180817, end: 20180817
  12. ROCURONIUM [Concomitant]
     Active Substance: ROCURONIUM BROMIDE
     Indication: INDUCTION OF ANAESTHESIA
     Dosage: 0.6 MG/KG, UNK
  13. ZALVISO [Suspect]
     Active Substance: SUFENTANIL CITRATE
     Indication: GASTRECTOMY
  14. KETOROLAC [Concomitant]
     Active Substance: KETOROLAC\KETOROLAC TROMETHAMINE
     Indication: SURGERY
     Dosage: 30 UG, SINGLE
     Dates: start: 20180817, end: 20180817
  15. MORPHINE [Concomitant]
     Active Substance: MORPHINE
     Indication: INDUCTION OF ANAESTHESIA
     Dosage: 6 MG, UNK
     Route: 042
     Dates: start: 20170817, end: 20170817
  16. ZOLOFT [Concomitant]
     Active Substance: SERTRALINE HYDROCHLORIDE
     Indication: THERAPEUTIC PROCEDURE
     Dosage: UNK
     Route: 048
  17. CEFAZOLIN [Suspect]
     Active Substance: CEFAZOLIN
     Indication: SURGERY
     Dosage: 2 G, SINGLE
     Route: 042
     Dates: start: 20180817, end: 20180817
  18. CISATRACURIUM. [Concomitant]
     Active Substance: CISATRACURIUM
     Dosage: 16 MG, UNK
     Route: 042
  19. MORPHINE [Concomitant]
     Active Substance: MORPHINE
     Indication: ANALGESIC THERAPY
     Dosage: 2 MG, UNK
     Route: 042
  20. FENTANYL. [Concomitant]
     Active Substance: FENTANYL
     Dosage: 200 MCG, ONCE
     Route: 042
     Dates: start: 20180817, end: 20180817
  21. QUETIAPINE. [Concomitant]
     Active Substance: QUETIAPINE
     Indication: THERAPEUTIC PROCEDURE
     Dosage: UNK
     Route: 048
  22. SEVOFLURANE. [Concomitant]
     Active Substance: SEVOFLURANE
     Indication: MAINTENANCE OF ANAESTHESIA
     Dosage: UNK
     Route: 055
  23. PANTOPRAZOLE [Concomitant]
     Active Substance: PANTOPRAZOLE
     Indication: SURGERY
     Dosage: 40 MG, SINGLE
     Route: 042
     Dates: start: 20180817, end: 20180817
  24. PARACETAMOL [Concomitant]
     Active Substance: ACETAMINOPHEN
     Indication: ANALGESIC THERAPY
     Dosage: 1 G, SINGLE
     Route: 042
     Dates: start: 20180817, end: 20180817
  25. CISATRACURIUM. [Concomitant]
     Active Substance: CISATRACURIUM
     Indication: INDUCTION OF ANAESTHESIA
     Dosage: 20 MG, UNK
     Route: 042
     Dates: start: 20180817, end: 20180817
  26. SUCCINYLCHOLINE [SUXAMETHONIUM] [Concomitant]
     Active Substance: SUCCINYLCHOLINE
     Indication: INDUCTION OF ANAESTHESIA
     Dosage: 150 MG, SINGLE
     Route: 042
     Dates: start: 20180817, end: 20180817

REACTIONS (5)
  - Respiratory arrest [Recovered/Resolved]
  - Product use in unapproved indication [Unknown]
  - Coma [Recovered/Resolved]
  - Respiratory depression [Recovered/Resolved]
  - Pain [Recovered/Resolved]

NARRATIVE: CASE EVENT DATE: 20180817
